FAERS Safety Report 24317139 (Version 1)
Quarter: 2024Q3

REPORT INFORMATION
  Report Type: Spontaneous
  Country: US (occurrence: None)
  Receive Date: 20240913
  Receipt Date: 20240913
  Transmission Date: 20241017
  Serious: Yes (Hospitalization)
  Sender: Public
  Company Number: None

PATIENT
  Age: 75 Year
  Sex: Female

DRUGS (11)
  1. PROLIA [Suspect]
     Active Substance: DENOSUMAB
     Route: 058
     Dates: start: 20200115
  2. AZITHROMYCIN [Concomitant]
     Active Substance: AZITHROMYCIN
  3. BOOSTRIX INJ [Concomitant]
  4. CALCIUM [Concomitant]
     Active Substance: CALCIUM
  5. CITALOPRAM [Concomitant]
     Active Substance: CITALOPRAM\CITALOPRAM HYDROBROMIDE
  6. ESCITALOPRAM [Concomitant]
     Active Substance: ESCITALOPRAM OXALATE
  7. ESTRADIOL MICRONI ZED [Concomitant]
  8. FLUOROMETHOL SUS [Concomitant]
  9. GLUCOSAMINE TAB [Concomitant]
  10. PROLIA [Concomitant]
     Active Substance: DENOSUMAB
  11. SHINGRIX INJ [Concomitant]

REACTIONS (1)
  - Ophthalmic migraine [None]

NARRATIVE: CASE EVENT DATE: 20240701
